FAERS Safety Report 6233923-1 (Version None)
Quarter: 2009Q2

REPORT INFORMATION
  Report Type: 
  Country: None (occurrence: None)
  Receive Date: 20090618
  Receipt Date: 20090611
  Transmission Date: 20091009
  Serious: Yes (Other)
  Sender: FDA-Public Use
  Company Number: SG-ASTRAZENECA-2009SE02307

PATIENT
  Age: 55 Year
  Sex: Female

DRUGS (1)
  1. RHINOCORT [Suspect]
     Indication: SINUSITIS
     Dosage: ONE SINGLE ADMINISTRATION
     Route: 045
     Dates: start: 20090602, end: 20090602

REACTIONS (1)
  - RHINORRHOEA [None]
